FAERS Safety Report 9210024 (Version 1)
Quarter: 2012Q4

REPORT INFORMATION
  Report Type: 
  Country: CA (occurrence: CA)
  Receive Date: 20120903
  Receipt Date: 20120903
  Transmission Date: 20130627
  Serious: Yes (Other)
  Sender: FDA-Public Use
  Company Number: PHHY2012CA075695

PATIENT
  Age: 66 None
  Sex: Female

DRUGS (1)
  1. ACLASTA [Suspect]
     Indication: OSTEOPOROSIS
     Route: 042
     Dates: start: 20111019

REACTIONS (4)
  - Fall [Unknown]
  - Dislocation of vertebra [Unknown]
  - Osteoarthritis [Unknown]
  - Back disorder [Unknown]
